FAERS Safety Report 6103312-9 (Version None)
Quarter: 2009Q1

REPORT INFORMATION
  Report Type: 
  Country: None (occurrence: None)
  Receive Date: 20090305
  Receipt Date: 20090224
  Transmission Date: 20090719
  Serious: Yes (Hospitalization)
  Sender: FDA-Public Use
  Company Number: FR-SOLVAY-00209001128

PATIENT
  Age: 23560 Day
  Sex: Female

DRUGS (8)
  1. KREDEX [Concomitant]
     Indication: DRUG USE FOR UNKNOWN INDICATION
     Dosage: DAILY DOSE: 25 MILLIGRAM(S)
     Route: 065
     Dates: start: 20081001
  2. COVERSYL 2 MG TABLET [Suspect]
     Indication: MYOCARDIAL INFARCTION
     Dosage: DAILY DOSE: 4 MILLIGRAM(S)
     Route: 048
     Dates: start: 20081001, end: 20090203
  3. REQUIP [Concomitant]
     Indication: DRUG USE FOR UNKNOWN INDICATION
     Dosage: DAILY DOSE: 1.25 MILLIGRAM(S)
     Route: 065
     Dates: start: 20030101
  4. PLAVIX [Concomitant]
     Indication: DRUG USE FOR UNKNOWN INDICATION
     Dosage: DAILY DOSE: 75 MILLIGRAM(S)
     Route: 065
  5. KARDEGIC [Concomitant]
     Indication: DRUG USE FOR UNKNOWN INDICATION
     Dosage: DAILY DOSE: 160 MILLIGRAM(S)
     Route: 065
  6. TAHOR [Concomitant]
     Indication: DRUG USE FOR UNKNOWN INDICATION
     Dosage: DAILY DOSE: 80 MILLIGRAM(S)
     Route: 065
     Dates: start: 20081001
  7. PROZAC [Concomitant]
     Indication: DRUG USE FOR UNKNOWN INDICATION
     Dosage: DAILY DOSE:  UNKNOWN
     Route: 065
     Dates: start: 20070101
  8. LEXOMIL [Concomitant]
     Indication: DRUG USE FOR UNKNOWN INDICATION
     Dosage: DAILY DOSE:  UNKNOWN
     Route: 065
     Dates: start: 20081001

REACTIONS (2)
  - CORONARY ARTERY RESTENOSIS [None]
  - ORTHOSTATIC HYPOTENSION [None]
